FAERS Safety Report 9796462 (Version 1)
Quarter: 2014Q1

REPORT INFORMATION
  Report Type: Spontaneous
  Country: DE (occurrence: DE)
  Receive Date: 20140103
  Receipt Date: 20140103
  Transmission Date: 20141002
  Serious: Yes (Congenital Anomaly)
  Sender: FDA-Public Use
  Company Number: DE-MYLANLABS-2013S1028760

PATIENT
  Age: 1 Day
  Sex: Female
  Weight: 1.62 kg

DRUGS (9)
  1. AMIODARONE [Suspect]
     Dosage: 200 [MG/D ]
     Route: 064
  2. GABAPENTIN [Suspect]
     Dosage: 2400 [MG/D ]
     Route: 064
  3. BISOPROLOL [Suspect]
     Dosage: 2.5 [MG/D ]
     Route: 064
     Dates: end: 20100315
  4. AMITRIPTYLINE [Suspect]
     Dosage: 75 [MG/D ]
     Route: 064
     Dates: end: 20100315
  5. BUPRENORPHINE [Suspect]
     Dosage: 70 [?G/H ]
     Route: 064
  6. OMEPRAZOLE [Concomitant]
     Route: 064
  7. MOVICOL [Concomitant]
     Dosage: TO 10 SSW 2X / WEEK, THEN DAILY
     Route: 064
     Dates: start: 20090801, end: 20100315
  8. ACETYLSALICYLIC ACID [Concomitant]
     Dosage: 100 [MG/D ]
     Route: 064
     Dates: start: 20090801, end: 20100315
  9. FOLIC ACID [Concomitant]
     Indication: PROPHYLAXIS OF NEURAL TUBE DEFECT
     Dosage: 0.4 [MG/D ]
     Route: 064

REACTIONS (4)
  - Ventricular septal defect [Recovered/Resolved]
  - Atrial septal defect [Not Recovered/Not Resolved]
  - Exposure during pregnancy [Recovered/Resolved]
  - Small for dates baby [Recovered/Resolved]
